FAERS Safety Report 8178452-3 (Version None)
Quarter: 2012Q1

REPORT INFORMATION
  Report Type: 
  Country: None (occurrence: None)
  Receive Date: 20120301
  Receipt Date: 20120224
  Transmission Date: 20120608
  Serious: Yes (Other)
  Sender: FDA-Public Use
  Company Number: US-AMGEN-USASP2012004446

PATIENT
  Age: 68 Year
  Sex: Female
  Weight: 45.805 kg

DRUGS (13)
  1. DECADRON [Concomitant]
     Dosage: 4 MG, BID
     Route: 048
     Dates: start: 20120124
  2. ALIMTA [Concomitant]
     Dosage: UNK
  3. ALOXI [Concomitant]
     Dosage: 1 MG, UNK
     Dates: start: 20120103
  4. FOLIC ACID ALMUS [Concomitant]
     Dosage: 1 MG, UNK
     Dates: start: 20120103
  5. NEULASTA [Suspect]
     Indication: NEUTROPENIA
     Dosage: 6 MG, UNK
     Route: 058
     Dates: start: 20120118
  6. NEXIUM [Concomitant]
     Dosage: UNK
  7. ARANESP [Concomitant]
  8. TAXOTERE [Concomitant]
     Indication: NON-SMALL CELL LUNG CANCER STAGE IV
  9. GEMZAR [Concomitant]
     Dosage: UNK
     Dates: start: 20120217
  10. CARBOPLATIN [Concomitant]
     Dosage: UNK
  11. VITAMIN B-12 [Concomitant]
     Dosage: UNK
  12. MARINOL [Concomitant]
  13. DECADRON [Concomitant]
     Dosage: 4 MG, UNK
     Route: 042
     Dates: start: 20120103

REACTIONS (16)
  - BACK PAIN [None]
  - CONSTIPATION [None]
  - ARTHRALGIA [None]
  - BALANCE DISORDER [None]
  - MUSCULOSKELETAL PAIN [None]
  - FEELING ABNORMAL [None]
  - FALL [None]
  - LIMB DISCOMFORT [None]
  - NAUSEA [None]
  - HAEMOGLOBIN ABNORMAL [None]
  - MOBILITY DECREASED [None]
  - CONTUSION [None]
  - NON-SMALL CELL LUNG CANCER [None]
  - WEIGHT DECREASED [None]
  - ORAL CANDIDIASIS [None]
  - LYMPHADENOPATHY [None]
